FAERS Safety Report 5312386-4 (Version None)
Quarter: 2007Q2

REPORT INFORMATION
  Report Type: 
  Country: None (occurrence: None)
  Receive Date: 20070430
  Receipt Date: 20061201
  Transmission Date: 20071010
  Serious: No
  Sender: FDA-Public Use
  Company Number: 2006UW26920

PATIENT
  Age: 76 Year
  Sex: Female
  Weight: 57.2 kg

DRUGS (3)
  1. NEXIUM [Suspect]
     Indication: GASTROOESOPHAGEAL REFLUX DISEASE
     Route: 048
  2. ACETYLSALICYLIC ACID SRT [Concomitant]
     Route: 048
  3. TIMOPTIC [Concomitant]

REACTIONS (3)
  - ARTHRITIS [None]
  - MUSCLE SPASMS [None]
  - VISUAL ACUITY REDUCED [None]
